FAERS Safety Report 5219236-5 (Version None)
Quarter: 2007Q1

REPORT INFORMATION
  Report Type: 
  Country: None (occurrence: None)
  Receive Date: 20070122
  Receipt Date: 20070112
  Transmission Date: 20070707
  Serious: Yes (Hospitalization)
  Sender: FDA-Public Use
  Company Number: 151305ISR

PATIENT
  Age: 34 Year
  Sex: Female

DRUGS (1)
  1. COPAXONE [Suspect]
     Indication: MULTIPLE SCLEROSIS
     Dosage: 20 MG (20 MG, 1 IN 1 D) SUBCUTANEOUS
     Route: 058
     Dates: start: 20050323, end: 20070111

REACTIONS (8)
  - ALANINE AMINOTRANSFERASE INCREASED [None]
  - BURNING SENSATION [None]
  - CHILLS [None]
  - ERYSIPELAS [None]
  - FEELING HOT [None]
  - INJECTION SITE ERYTHEMA [None]
  - PYREXIA [None]
  - URTICARIA [None]
